FAERS Safety Report 9466756 (Version 1)
Quarter: 2013Q3

REPORT INFORMATION
  Report Type: Spontaneous
  Country: US (occurrence: US)
  Receive Date: 20130820
  Receipt Date: 20130820
  Transmission Date: 20140515
  Serious: Yes (Life-Threatening, Hospitalization, Disabling)
  Sender: FDA-Public Use
  Company Number: US-JNJFOC-20130810486

PATIENT
  Sex: Male

DRUGS (2)
  1. XARELTO [Suspect]
     Indication: THROMBOSIS PROPHYLAXIS
     Route: 048
     Dates: start: 20111207, end: 20111214
  2. XARELTO [Suspect]
     Indication: HIP ARTHROPLASTY
     Route: 048
     Dates: start: 20111207, end: 20111214

REACTIONS (4)
  - Pulmonary embolism [Unknown]
  - Drug prescribing error [Unknown]
  - Inappropriate schedule of drug administration [Unknown]
  - Deep vein thrombosis [Unknown]
